FAERS Safety Report 4928789-3 (Version None)
Quarter: 2006Q1

REPORT INFORMATION
  Report Type: 
  Country: None (occurrence: None)
  Receive Date: 20060301
  Receipt Date: 20060223
  Transmission Date: 20060701
  Serious: Yes (Hospitalization)
  Sender: FDA-Public Use
  Company Number: US-JNJFOC-20060205605

PATIENT
  Sex: Female

DRUGS (14)
  1. INFLIXIMAB [Suspect]
     Indication: RHEUMATOID ARTHRITIS
     Route: 042
  2. COUMADIN [Concomitant]
  3. COREG [Concomitant]
  4. PRINIVIL [Concomitant]
  5. ASPIRIN [Concomitant]
  6. FLAX SEED OIL [Concomitant]
  7. VITAMIN B-12 [Concomitant]
  8. VITAMIN E [Concomitant]
  9. ZOMIG [Concomitant]
  10. GLUCOSAMINE [Concomitant]
  11. METHOTREXATE [Concomitant]
  12. PREDNISONE [Concomitant]
  13. CALCIUM +D [Concomitant]
  14. NONI JUICE [Concomitant]

REACTIONS (2)
  - DIZZINESS [None]
  - GASTROENTERITIS [None]
